FAERS Safety Report 6914980-3 (Version None)
Quarter: 2010Q3

REPORT INFORMATION
  Report Type: 
  Country: None (occurrence: None)
  Receive Date: 20100804
  Receipt Date: 20100722
  Transmission Date: 20110219
  Serious: Yes (Other)
  Sender: FDA-Public Use
  Company Number: 7012080

PATIENT
  Age: 62 Year
  Sex: Female
  Weight: 51 kg

DRUGS (8)
  1. REBIF [Suspect]
     Indication: MULTIPLE SCLEROSIS
     Dosage: 44 MCG, 3 IN 1 WK, SUBCUTANEOUS
     Route: 058
     Dates: start: 20070425
  2. WELLBUTRIN [Concomitant]
  3. TRAZODONE (TRAZOJONE) [Concomitant]
  4. CLONAZEPAM [Concomitant]
  5. MORNHINE (MORPHINE) [Concomitant]
  6. HYDROCODONE BITARTRATE [Concomitant]
  7. AMLODININE (AMLODIPINE) [Concomitant]
  8. OTHER UNSPECIFIED MEDICATION (ALL OTHER THERAPEUTIC PRODUCTS) [Concomitant]

REACTIONS (8)
  - APHASIA [None]
  - BALANCE DISORDER [None]
  - DIZZINESS [None]
  - EYE DISORDER [None]
  - GAIT DISTURBANCE [None]
  - HEADACHE [None]
  - HEPATIC STEATOSIS [None]
  - MEMORY IMPAIRMENT [None]
